FAERS Safety Report 16530875 (Version 1)
Quarter: 2019Q3

REPORT INFORMATION
  Report Type: Report from Study
  Country: BR (occurrence: BR)
  Receive Date: 20190704
  Receipt Date: 20190704
  Transmission Date: 20191004
  Serious: Yes (Other)
  Sender: FDA-Public Use
  Company Number: PHHY2019BR149332

PATIENT
  Age: 61 Year
  Sex: Female

DRUGS (2)
  1. ANASTROZOLE. [Suspect]
     Active Substance: ANASTROZOLE
     Indication: BREAST CANCER
     Route: 065
  2. ALENDRONATE SODIUM. [Suspect]
     Active Substance: ALENDRONATE SODIUM
     Indication: MINERAL SUPPLEMENTATION
     Dosage: 1 DF, QW
     Route: 065
     Dates: start: 2017

REACTIONS (5)
  - Thyroid mass [Unknown]
  - Glucose tolerance impaired [Unknown]
  - Breast cancer [Unknown]
  - Erosive oesophagitis [Unknown]
  - Osteoporosis [Unknown]

NARRATIVE: CASE EVENT DATE: 201610
